FAERS Safety Report 25531711 (Version 1)
Quarter: 2025Q3

REPORT INFORMATION
  Report Type: Spontaneous
  Country: EU (occurrence: EU)
  Receive Date: 20250709
  Receipt Date: 20250709
  Transmission Date: 20251020
  Serious: Yes (Hospitalization, Other)
  Sender: BRISTOL-MYERS SQUIBB COMPANY
  Company Number: None

PATIENT
  Age: 58 Year
  Sex: Female
  Weight: 117 kg

DRUGS (2)
  1. REPOTRECTINIB [Suspect]
     Active Substance: REPOTRECTINIB
     Indication: Lung adenocarcinoma
     Route: 048
     Dates: start: 20250218
  2. LORLATINIB [Concomitant]
     Active Substance: LORLATINIB
     Indication: Lung adenocarcinoma
     Route: 048
     Dates: start: 20231108, end: 20250218

REACTIONS (1)
  - Pulmonary hypertension [Not Recovered/Not Resolved]

NARRATIVE: CASE EVENT DATE: 20250401
